FAERS Safety Report 13254795 (Version 2)
Quarter: 2017Q1

REPORT INFORMATION
  Report Type: Spontaneous
  Country: US (occurrence: US)
  Receive Date: 20170221
  Receipt Date: 20170314
  Transmission Date: 20170428
  Serious: No
  Sender: FDA-Public Use
  Company Number: US-PFIZER INC-2017066267

PATIENT
  Age: 40 Year
  Sex: Female
  Weight: 67.12 kg

DRUGS (1)
  1. METHOTREXATE SODIUM. [Suspect]
     Active Substance: METHOTREXATE SODIUM
     Indication: RHEUMATOID ARTHRITIS
     Dosage: 204 MG (3 MG/KG)
     Dates: start: 2009, end: 20141216

REACTIONS (2)
  - Lung disorder [Unknown]
  - Drug ineffective [Unknown]
